FAERS Safety Report 23914640 (Version 2)
Quarter: 2024Q2

REPORT INFORMATION
  Report Type: Report from Study
  Country: US (occurrence: None)
  Receive Date: 20240529
  Receipt Date: 20240606
  Transmission Date: 20240716
  Serious: Yes (Hospitalization, Other)
  Sender: FDA-Public Use
  Company Number: 2024A123335

PATIENT
  Age: 56 Year
  Sex: Male
  Weight: 82 kg

DRUGS (3)
  1. OMEPRAZOLE [Suspect]
     Active Substance: DONEPEZIL HYDROCHLORIDE\OMEPRAZOLE\OMEPRAZOLE MAGNESIUM
     Dosage: UNKNOWN
     Route: 048
  2. VUDALIMAB [Suspect]
     Active Substance: VUDALIMAB
     Indication: Adenocarcinoma
     Route: 042
     Dates: start: 20240328, end: 20240328
  3. CABAZITAXEL [Suspect]
     Active Substance: CABAZITAXEL
     Indication: Adenocarcinoma
     Route: 042
     Dates: start: 20240328, end: 20240328

REACTIONS (19)
  - Sepsis [Unknown]
  - Systemic inflammatory response syndrome [Unknown]
  - Hypertransaminasaemia [Unknown]
  - Pulmonary embolism [Recovered/Resolved]
  - Malignant neoplasm progression [Unknown]
  - Dyspnoea [Unknown]
  - Chest discomfort [Unknown]
  - Pyrexia [Unknown]
  - Chills [Unknown]
  - Back pain [Unknown]
  - Renal pain [Unknown]
  - Metastases to lymph nodes [Unknown]
  - Mass [Unknown]
  - Immune-mediated hepatitis [Unknown]
  - Metastases to liver [Unknown]
  - Thrombocytopenia [Unknown]
  - Lymphadenopathy [Unknown]
  - Inappropriate antidiuretic hormone secretion [Unknown]
  - Myelosuppression [Unknown]

NARRATIVE: CASE EVENT DATE: 20240418
